FAERS Safety Report 5303596-0 (Version None)
Quarter: 2007Q2

REPORT INFORMATION
  Report Type: 
  Country: None (occurrence: None)
  Receive Date: 20070420
  Receipt Date: 20070410
  Transmission Date: 20071010
  Serious: Yes (Other)
  Sender: FDA-Public Use
  Company Number: JP-PFIZER INC-2007026849

PATIENT
  Age: 60 Year
  Sex: Male

DRUGS (1)
  1. UNASYN [Suspect]
     Route: 042

REACTIONS (2)
  - JAUNDICE [None]
  - RASH GENERALISED [None]
